FAERS Safety Report 9089549 (Version 1)
Quarter: 2013Q1

REPORT INFORMATION
  Report Type: Report from Study
  Country: US (occurrence: US)
  Receive Date: 20130131
  Receipt Date: 20130131
  Transmission Date: 20140127
  Serious: Yes (Other)
  Sender: FDA-Public Use
  Company Number: US-ABBOTT-12P-163-1011206-00

PATIENT
  Age: 47 None
  Sex: Male
  Weight: 127.12 kg

DRUGS (4)
  1. HUMIRA [Suspect]
     Indication: RHEUMATOID ARTHRITIS
     Dates: start: 201206
  2. VITAMIN D [Concomitant]
     Indication: VITAMIN SUPPLEMENTATION
  3. PAXIL [Concomitant]
     Indication: DEPRESSION
  4. NAPROXEN [Concomitant]
     Indication: PAIN

REACTIONS (4)
  - Groin pain [Not Recovered/Not Resolved]
  - Chest discomfort [Recovered/Resolved]
  - Diabetes mellitus [Unknown]
  - Peripheral embolism [Unknown]
